FAERS Safety Report 21997749 (Version 1)
Quarter: 2023Q1

REPORT INFORMATION
  Report Type: Spontaneous
  Country: US (occurrence: US)
  Receive Date: 20230216
  Receipt Date: 20230216
  Transmission Date: 20230418
  Serious: Yes (Other)
  Sender: FDA-Public Use
  Company Number: US-ROCHE-3286660

PATIENT
  Age: 54 Year
  Sex: Male
  Weight: 81.19 kg

DRUGS (5)
  1. RANIBIZUMAB [Suspect]
     Active Substance: RANIBIZUMAB
     Indication: Diabetic retinal oedema
     Dosage: 6 MG, PRN (AS NECESSARY)
     Route: 065
     Dates: start: 20190227
  2. AFLIBERCEPT [Suspect]
     Active Substance: AFLIBERCEPT
     Indication: Diabetic retinal oedema
     Dosage: UNK
     Route: 065
     Dates: start: 20190227
  3. LOSARTAN [Concomitant]
     Active Substance: LOSARTAN
     Indication: Microalbuminuria
     Dosage: UNK
     Dates: start: 2017
  4. METFORMIN [Concomitant]
     Active Substance: METFORMIN HYDROCHLORIDE
     Indication: Diabetes mellitus
     Dosage: UNK
     Dates: start: 2014
  5. TUMS [Concomitant]
     Active Substance: CALCIUM CARBONATE
     Indication: Gastrooesophageal reflux disease
     Dosage: UNK
     Dates: start: 2017

REACTIONS (1)
  - Epiretinal membrane [Not Recovered/Not Resolved]

NARRATIVE: CASE EVENT DATE: 20200622
